FAERS Safety Report 19907163 (Version 1)
Quarter: 2021Q4

REPORT INFORMATION
  Report Type: Report from Study
  Country: US (occurrence: US)
  Receive Date: 20211001
  Receipt Date: 20211001
  Transmission Date: 20220303
  Serious: Yes (Hospitalization)
  Sender: FDA-Public Use
  Company Number: US-ROCHE-2922864

PATIENT
  Age: 60 Year
  Sex: Female

DRUGS (9)
  1. CAPECITABINE [Suspect]
     Active Substance: CAPECITABINE
     Indication: Triple negative breast cancer
     Dosage: 1000-1250 MG/M2??MOST RECENT DOSE PRIOR TO SAE 29/AUG/2019
     Route: 048
     Dates: start: 20190109, end: 20190830
  2. VITAMIN D3 [Concomitant]
     Active Substance: CHOLECALCIFEROL
  3. FAMOTIDINE [Concomitant]
     Active Substance: FAMOTIDINE
     Dates: start: 20190811
  4. IRON [Concomitant]
     Active Substance: IRON
  5. HEPARIN SODIUM [Concomitant]
     Active Substance: HEPARIN SODIUM
     Dates: start: 20190807
  6. MS CONTIN [Concomitant]
     Active Substance: MORPHINE SULFATE
     Route: 065
     Dates: start: 20190814
  7. MORPHINE SULFATE [Concomitant]
     Active Substance: MORPHINE SULFATE
     Dates: start: 20181228
  8. CARMOL [UREA] [Concomitant]
  9. VALTREX [Concomitant]
     Active Substance: VALACYCLOVIR HYDROCHLORIDE
     Dates: start: 20190130

REACTIONS (1)
  - Pancreatitis acute [Recovered/Resolved with Sequelae]

NARRATIVE: CASE EVENT DATE: 20190907
